FAERS Safety Report 6967261-6 (Version None)
Quarter: 2010Q3

REPORT INFORMATION
  Report Type: 
  Country: None (occurrence: None)
  Receive Date: 20100907
  Receipt Date: 20100830
  Transmission Date: 20110219
  Serious: Yes (Other)
  Sender: FDA-Public Use
  Company Number: US-ASTRAZENECA-2008UW08903

PATIENT
  Age: 16165 Day
  Sex: Female
  Weight: 61.2 kg

DRUGS (6)
  1. SEROQUEL [Suspect]
     Indication: DEPRESSION
     Dosage: 75-200 MG
     Route: 048
     Dates: start: 20010601, end: 20060601
  2. SEROQUEL [Suspect]
     Dosage: 25-400 MG
     Route: 048
     Dates: start: 20010607, end: 20050112
  3. ZYPREXA [Concomitant]
     Indication: DEPRESSION
     Dates: start: 20010101, end: 20020101
  4. ABILIFY [Concomitant]
  5. GEODON [Concomitant]
  6. HALDOL [Concomitant]
     Dates: start: 20100701

REACTIONS (6)
  - BLOOD CHOLESTEROL INCREASED [None]
  - DIABETIC COMPLICATION [None]
  - HYPERLIPIDAEMIA [None]
  - OVERDOSE [None]
  - TYPE 2 DIABETES MELLITUS [None]
  - WEIGHT INCREASED [None]
